FAERS Safety Report 4723594-5 (Version None)
Quarter: 2005Q3

REPORT INFORMATION
  Report Type: 
  Country: None (occurrence: None)
  Receive Date: 20050725
  Receipt Date: 20041206
  Transmission Date: 20060218
  Serious: Yes (Life-Threatening, Hospitalization, Disabling, Other)
  Sender: FDA-Public Use
  Company Number: US-MERCK-0412USA00678

PATIENT
  Age: 51 Year
  Sex: Male
  Weight: 75 kg

DRUGS (10)
  1. VIOXX [Suspect]
     Indication: BACK PAIN
     Route: 048
     Dates: start: 20000530, end: 20040531
  2. NEURONTIN [Concomitant]
     Route: 048
     Dates: start: 20000101, end: 20030501
  3. NEURONTIN [Concomitant]
     Route: 048
     Dates: end: 20040401
  4. NEURONTIN [Concomitant]
     Route: 048
     Dates: end: 20040511
  5. BEXTRA [Concomitant]
     Route: 065
  6. VIAGRA [Concomitant]
     Route: 065
  7. NEXIUM [Concomitant]
     Route: 065
  8. AMITRIPTYLINE HYDROCHLORIDE [Concomitant]
     Route: 065
  9. IBUPROFEN [Concomitant]
     Route: 065
  10. DURAGESIC-100 [Concomitant]
     Route: 065

REACTIONS (30)
  - BACK PAIN [None]
  - BLOOD PRESSURE INCREASED [None]
  - BRONCHITIS [None]
  - CARDIOMEGALY [None]
  - CHRONIC OBSTRUCTIVE PULMONARY DISEASE [None]
  - CONVULSION [None]
  - DIZZINESS [None]
  - DRUG INTERACTION [None]
  - DYSPEPSIA [None]
  - EMPHYSEMA [None]
  - FACIAL BONES FRACTURE [None]
  - FLANK PAIN [None]
  - GASTROOESOPHAGEAL REFLUX DISEASE [None]
  - HEADACHE [None]
  - HEPATITIS C [None]
  - HIATUS HERNIA [None]
  - HYPERCHOLESTEROLAEMIA [None]
  - HYPERTENSION [None]
  - INTERVERTEBRAL DISC PROTRUSION [None]
  - JOINT INJURY [None]
  - MENTAL STATUS CHANGES [None]
  - MUSCLE SPASMS [None]
  - MUSCULOSKELETAL DISCOMFORT [None]
  - NECK PAIN [None]
  - OVERDOSE [None]
  - PEPTIC ULCER [None]
  - RADICULOPATHY [None]
  - ROAD TRAFFIC ACCIDENT [None]
  - SKIN EXFOLIATION [None]
  - SKIN IRRITATION [None]
